FAERS Safety Report 23467807 (Version 1)
Quarter: 2024Q1

REPORT INFORMATION
  Report Type: Spontaneous
  Country: US (occurrence: None)
  Receive Date: 20240201
  Receipt Date: 20240201
  Transmission Date: 20240409
  Serious: Yes (Hospitalization)
  Sender: FDA-Public Use
  Company Number: US-FARMAPROD-202401-0133

PATIENT
  Age: 59 Year
  Sex: Female

DRUGS (22)
  1. OXERVATE [Suspect]
     Active Substance: CENEGERMIN-BKBJ
     Indication: Neurotrophic keratopathy
     Route: 047
     Dates: start: 20240112
  2. ONDANSETRON HYDROCHLORIDE [Concomitant]
     Active Substance: ONDANSETRON HYDROCHLORIDE
     Dosage: 4 MG / 2 ML VIAL
  3. SYSTANE (HYPROMELLOSE 2910 (4000 MPA.S)) [Concomitant]
     Active Substance: HYPROMELLOSE 2910 (4000 MPA.S)
     Dosage: 0.3%-0.4%
  4. SUDAFED 12 HOUR [Concomitant]
     Active Substance: PSEUDOEPHEDRINE HYDROCHLORIDE
     Dosage: FOR 12 HOURS
  5. MELOXICAM [Concomitant]
     Active Substance: MELOXICAM
  6. TOPIRAMATE [Concomitant]
     Active Substance: TOPIRAMATE
  7. AIMOVIG [Concomitant]
     Active Substance: ERENUMAB-AOOE
     Dosage: AUTOINJECTOR
  8. LEVOTHYROXINE SODIUM [Concomitant]
     Active Substance: LEVOTHYROXINE SODIUM
  9. CYCLOBENZAPRINE HYDROCHLORIDE [Concomitant]
     Active Substance: CYCLOBENZAPRINE HYDROCHLORIDE
  10. LOVASTATIN [Concomitant]
     Active Substance: LOVASTATIN
  11. IBUPROFEN [Concomitant]
     Active Substance: IBUPROFEN
  12. BOTOX [Concomitant]
     Active Substance: ONABOTULINUMTOXINA
     Dosage: VIAL
  13. HYDROXYZINE HYDROCHLORIDE [Concomitant]
     Active Substance: HYDROXYZINE HYDROCHLORIDE
  14. ALBUTEROL SULFATE [Concomitant]
     Active Substance: ALBUTEROL SULFATE
     Dosage: HYDROFLUOROALKANE
  15. CLONAZEPAM [Concomitant]
     Active Substance: CLONAZEPAM
  16. VIIBRYD [Concomitant]
     Active Substance: VILAZODONE HYDROCHLORIDE
  17. ACETAMINOPHEN\HYDROCODONE [Concomitant]
     Active Substance: ACETAMINOPHEN\HYDROCODONE
  18. HYDROXYCHLOROQUINE SULFATE [Concomitant]
     Active Substance: HYDROXYCHLOROQUINE SULFATE
  19. ZOLPIDEM TARTRATE [Concomitant]
     Active Substance: ZOLPIDEM TARTRATE
     Dosage: EXTENDED RELEASE
  20. PREDNISOLONE [Concomitant]
     Active Substance: PREDNISOLONE
     Dosage: 15 MILLIGRAMS/5 MILLILITRES
  21. PANTOPRAZOLE SODIUM [Concomitant]
     Active Substance: PANTOPRAZOLE SODIUM
  22. AMITIZA [Concomitant]
     Active Substance: LUBIPROSTONE

REACTIONS (5)
  - Hospitalisation [Unknown]
  - Eye pain [Unknown]
  - Product administration error [Unknown]
  - Wrong technique in product usage process [Unknown]
  - Malaise [Unknown]

NARRATIVE: CASE EVENT DATE: 20240101
